FAERS Safety Report 17639298 (Version 1)
Quarter: 2020Q2

REPORT INFORMATION
  Report Type: Spontaneous
  Country: FR (occurrence: FR)
  Receive Date: 20200407
  Receipt Date: 20200407
  Transmission Date: 20200713
  Serious: Yes (Disabling)
  Sender: FDA-Public Use
  Company Number: NVSC2020FR063192

PATIENT
  Age: 68 Year
  Sex: Male
  Weight: 85 kg

DRUGS (17)
  1. ENTRESTO [Suspect]
     Active Substance: SACUBITRIL\VALSARTAN
     Dosage: 2 DF, QD (97/103 MG)
     Route: 048
     Dates: start: 202001, end: 20200206
  2. BISOPROLOL [Concomitant]
     Active Substance: BISOPROLOL
     Indication: PRODUCT USED FOR UNKNOWN INDICATION
     Dosage: UNK
     Route: 065
  3. ELIQUIS [Concomitant]
     Active Substance: APIXABAN
     Indication: ATRIAL FIBRILLATION
  4. LASILIX [Concomitant]
     Active Substance: FUROSEMIDE
     Indication: ISCHAEMIC CARDIOMYOPATHY
     Dosage: UNK (DOSE: 40, STARTED AROUND 2014)
     Route: 065
  5. OMIX [Concomitant]
     Active Substance: TAMSULOSIN HYDROCHLORIDE
     Indication: PRODUCT USED FOR UNKNOWN INDICATION
     Dosage: UNK
     Route: 065
  6. VICTOZA [Concomitant]
     Active Substance: LIRAGLUTIDE
     Indication: PRODUCT USED FOR UNKNOWN INDICATION
     Dosage: 1.8 UNK
     Route: 065
     Dates: start: 20180626
  7. PRAVASTATIN SODIUM. [Concomitant]
     Active Substance: PRAVASTATIN SODIUM
     Indication: ISCHAEMIC CARDIOMYOPATHY
     Dosage: UNK (DOSE: 20, STARTED AROUND 2014)
     Route: 065
  8. ASPIRIN. [Concomitant]
     Active Substance: ASPIRIN
     Indication: PRODUCT USED FOR UNKNOWN INDICATION
     Dosage: UNK
     Route: 065
  9. NEBIVOLOL. [Concomitant]
     Active Substance: NEBIVOLOL
     Indication: ISCHAEMIC CARDIOMYOPATHY
     Dosage: UNK (DOSE: 5X2, STARTED AROUND 2014) )
     Route: 065
  10. STAGID [Concomitant]
     Active Substance: METFORMIN PAMOATE
     Indication: ISCHAEMIC CARDIOMYOPATHY
     Dosage: UNK (DOSE: X2, STARTED AROUND 2014)
     Route: 065
  11. STAGID [Concomitant]
     Active Substance: METFORMIN PAMOATE
     Dosage: UNK (DOSE: X2, STARTED AROUND 2014)
     Route: 065
  12. ENTRESTO [Suspect]
     Active Substance: SACUBITRIL\VALSARTAN
     Indication: CARDIAC FAILURE
     Dosage: 2 DF, QD (49/51 MG)
     Route: 065
  13. ENTRESTO [Suspect]
     Active Substance: SACUBITRIL\VALSARTAN
     Dosage: 2 MG, QD (49/51 MG)
     Route: 065
     Dates: start: 20200206, end: 20200313
  14. EPLERENONE. [Concomitant]
     Active Substance: EPLERENONE
     Indication: ISCHAEMIC CARDIOMYOPATHY
     Dosage: UNK (DOSE: 50, STARTED AROUND 2014)
     Route: 065
  15. DIAMICRON [Concomitant]
     Active Substance: GLICLAZIDE
     Indication: ISCHAEMIC CARDIOMYOPATHY
     Dosage: UNK (DOSE: 60, STARTED AROUND 2014)
     Route: 065
  16. METFORMINE [Concomitant]
     Active Substance: METFORMIN HYDROCHLORIDE
     Indication: PRODUCT USED FOR UNKNOWN INDICATION
     Dosage: UNK
     Route: 065
  17. ELIQUIS [Concomitant]
     Active Substance: APIXABAN
     Indication: ARRHYTHMIA
     Dosage: UNK (DOSE 5X2)
     Route: 048
     Dates: start: 20191202

REACTIONS (5)
  - Somnolence [Recovered/Resolved]
  - Dyspnoea [Recovered/Resolved]
  - Hyperglycaemia [Recovered/Resolved]
  - Haemorrhoids [Recovered/Resolved]
  - Fatigue [Recovered/Resolved]

NARRATIVE: CASE EVENT DATE: 20200117
